FAERS Safety Report 19042384 (Version 1)
Quarter: 2021Q1

REPORT INFORMATION
  Report Type: Spontaneous
  Country: NO (occurrence: NO)
  Receive Date: 20210323
  Receipt Date: 20210323
  Transmission Date: 20210420
  Serious: Yes (Hospitalization, Disabling)
  Sender: FDA-Public Use
  Company Number: NO-TEVA-2021-NO-1892217

PATIENT
  Age: 70 Year
  Sex: Female
  Weight: 79.5 kg

DRUGS (22)
  1. VITAMIN B12 DEPOT [Concomitant]
     Indication: VITAMIN B12 DEFICIENCY
     Dosage: 1 DOSE PER 9TH WEEK UNTIL 3 WEEKS AFTER THE LAST CYCLE, 1DF
     Route: 030
  2. KEYTRUDA [Concomitant]
     Active Substance: PEMBROLIZUMAB
     Indication: NON-SMALL CELL LUNG CANCER METASTATIC
     Dosage: TWO CYCLES, 200MG
     Route: 042
     Dates: start: 20200624, end: 202008
  3. DEXAMETASON ABCUR [Concomitant]
     Indication: PREMEDICATION
     Dosage: 4 MG X 2 THE DAY BEFORE CHEMOTHERAPY, THE FOLLOWING DAY AND THE DAY AFTER CHEMOTHERAPY, 4MG
     Route: 048
  4. CARBOPLATIN. [Suspect]
     Active Substance: CARBOPLATIN
     Indication: NON-SMALL CELL LUNG CANCER METASTATIC
     Dosage: AUC 5 = 610 MG,TWO CYCLES, 610MG
     Route: 042
     Dates: start: 20200624, end: 202008
  5. ALIMTA [Suspect]
     Active Substance: PEMETREXED DISODIUM
     Indication: NON-SMALL CELL LUNG CANCER METASTATIC
     Dosage: 500 MG/M2 = 900 MG,TWO CYCLES, 900MG
     Route: 015
     Dates: start: 20200624, end: 202008
  6. LAXOBERAL [Concomitant]
     Active Substance: SODIUM PICOSULFATE
     Indication: CONSTIPATION
     Dosage: 5?15 DROPS WHEN NEEDED WHEN DUPHALAC IS NOT ENOUGH. 5DF
     Route: 048
  7. FOLSYRE NAF [Concomitant]
     Active Substance: FOLIC ACID
     Indication: VITAMIN SUPPLEMENTATION
     Dosage: 1 MG X 1 UNTIL 3 WEEKS AFTER THE LAST CYCLE, 1MG
     Route: 048
  8. DUPHALAC [Concomitant]
     Active Substance: LACTULOSE
     Indication: CONSTIPATION
     Dosage: 10?15 ML WHEN NEEDED, MAX X 3, 10ML
     Route: 048
  9. MUCOMYST [Concomitant]
     Active Substance: ACETYLCYSTEINE
     Dosage: 200 MG WHEN NEEDED UP TO X 3, 200MG
     Route: 048
  10. KODEIN [Concomitant]
     Active Substance: CODEINE PHOSPHATE
     Indication: COUGH
     Dosage: 25 MG EVENING WHEN NEEDED, 25MG
     Route: 048
  11. ATOZET [Concomitant]
     Active Substance: ATORVASTATIN CALCIUM\EZETIMIBE
     Indication: BLOOD CHOLESTEROL INCREASED
     Dosage: FOR ACTIVE INGREDIENT ATORVASTATIN THE STRENGTH IS 40 MILLIGRAM .?FOR ACTIVE INGREDIENT EZETIMIBE TH
     Route: 048
  12. EZETROL [Concomitant]
     Active Substance: EZETIMIBE
     Indication: BLOOD CHOLESTEROL INCREASED
     Dosage: 10MG
     Route: 048
  13. AFIPRAN [Concomitant]
     Active Substance: METOCLOPRAMIDE HYDROCHLORIDE
     Indication: NAUSEA
     Dosage: 10 MG UP TO X 3, 10MG
     Route: 048
  14. ZOPIKLON MYLAN [Concomitant]
     Active Substance: ZOPICLONE
     Indication: INSOMNIA
     Dosage: 7.5 MILLIGRAM DAILY; 7.5 MG IN THE EVENING
     Route: 048
  15. ZESTRIL [Concomitant]
     Active Substance: LISINOPRIL
     Indication: HYPERTENSION
     Dosage: 10MG
     Route: 048
  16. ATORVASTATIN MYLAN [Concomitant]
     Active Substance: ATORVASTATIN
     Indication: BLOOD CHOLESTEROL INCREASED
     Dosage: 40MG
     Route: 048
  17. ALBYL?E [Concomitant]
     Active Substance: ASPIRIN\MAGNESIUM OXIDE
     Dosage: 75MG
     Route: 048
     Dates: start: 20200831
  18. CYKLOKAPRON [Concomitant]
     Active Substance: TRANEXAMIC ACID
     Indication: HAEMORRHAGE PROPHYLAXIS
     Dosage: 500 MG UP TO X 3, 500MG
     Route: 048
  19. ONDANSETRON BLUEFISH [Concomitant]
     Indication: NAUSEA
     Dosage: 8 MG X 2 DURING THE CHEMOTHERAPY AND THEREAFTER 1?2 TIMES PER DAY IF NEEDED, 8MG
     Route: 048
  20. GLIMEPIRID HEXAL [Concomitant]
     Indication: TYPE 2 DIABETES MELLITUS
     Dosage: 2 TABLETS A 2 MG IN THE MORNING (DOSE INCRESED), 4MG
     Route: 048
  21. FURIX [Concomitant]
     Indication: DIURETIC THERAPY
     Dosage: 20 MG SOMETIMES, AS INSTRUCTED BY THE DOCTOR, 20MG
     Route: 048
  22. AKYNZEO [Concomitant]
     Active Substance: NETUPITANT\PALONOSETRON HYDROCHLORIDE
     Indication: NAUSEA
     Dosage: 1 CAPSULE 1 HOUR BEFORE CHEMOTHERAPY?FOR ACTIVE INGREDIENT PALONOSETRON THE STRENGTH IS .5 MILLIGRAM
     Route: 048
     Dates: start: 202008

REACTIONS (4)
  - Leg amputation [Recovered/Resolved with Sequelae]
  - Febrile neutropenia [Recovered/Resolved]
  - Arteriosclerosis [Recovered/Resolved with Sequelae]
  - Leg amputation [Recovered/Resolved with Sequelae]

NARRATIVE: CASE EVENT DATE: 20200729
